FAERS Safety Report 15484386 (Version 1)
Quarter: 2018Q4

REPORT INFORMATION
  Report Type: Spontaneous
  Country: US (occurrence: US)
  Receive Date: 20181010
  Receipt Date: 20181010
  Transmission Date: 20190205
  Serious: No
  Sender: FDA-Public Use
  Company Number: US-TEVA-2018-US-961214

PATIENT
  Age: 73 Year
  Sex: Female

DRUGS (1)
  1. CLONAZEPAM ACTAVIS [Suspect]
     Active Substance: CLONAZEPAM
     Route: 065

REACTIONS (4)
  - Burning mouth syndrome [Unknown]
  - Ageusia [Unknown]
  - Product use in unapproved indication [Unknown]
  - Hypoaesthesia oral [Unknown]
